FAERS Safety Report 24223756 (Version 3)
Quarter: 2024Q4

REPORT INFORMATION
  Report Type: Spontaneous
  Country: US (occurrence: US)
  Receive Date: 20240819
  Receipt Date: 20241009
  Transmission Date: 20250114
  Serious: Yes (Disabling, Other)
  Sender: PFIZER
  Company Number: US-PFIZER INC-202400237409

PATIENT
  Age: 64 Year
  Sex: Female
  Weight: 90.72 kg

DRUGS (18)
  1. PAXLOVID [Interacting]
     Active Substance: NIRMATRELVIR\RITONAVIR
     Indication: COVID-19 treatment
     Dosage: [NIRMATRELVIR 300 MG]/[RITONAVIR 100 MG]; 2X/DAY
     Route: 048
     Dates: start: 20240801, end: 20240806
  2. VENLAFAXINE [Interacting]
     Active Substance: VENLAFAXINE HYDROCHLORIDE
     Dosage: UNK UNK, 1X/DAY
  3. LEVOTHYROXINE [Concomitant]
     Active Substance: LEVOTHYROXINE
     Indication: Thyroid disorder
     Dosage: 0.088 UG, 1X/DAY (STARTED: 20 YEARS AGO)
     Route: 048
     Dates: start: 2004
  4. LEVOTHYROXINE [Concomitant]
     Active Substance: LEVOTHYROXINE
     Dosage: 1 TABLET BY MOUTH EVERY OTHER DAY 1.5 TABS QOD
     Route: 048
  5. BUSPAR [Concomitant]
     Active Substance: BUSPIRONE HYDROCHLORIDE
     Indication: Anxiety
     Dosage: 7 MG, 2X/DAY (STARTED MAYBE 10 YEARS AGO)
     Route: 048
  6. ZYRTEC [Concomitant]
     Active Substance: CETIRIZINE HYDROCHLORIDE
     Indication: Antiallergic therapy
     Dosage: 10 MG, 1X/DAY (ONCE EVERY 24 HOURS)
     Route: 048
     Dates: start: 202407
  7. ZYRTEC [Concomitant]
     Active Substance: CETIRIZINE HYDROCHLORIDE
     Indication: Seasonal allergy
  8. ESOMEPRAZOLE MAGNESIUM [Concomitant]
     Active Substance: ESOMEPRAZOLE MAGNESIUM
     Dosage: 40 MG, DAILY
     Route: 048
  9. BUSPIRONE [Concomitant]
     Active Substance: BUSPIRONE HYDROCHLORIDE
     Dosage: TAKE 2 TAB BY MOUTH TWICE DAILY.
     Route: 048
  10. HYDROXYZINE HYDROCHLORIDE [Concomitant]
     Active Substance: HYDROXYZINE HYDROCHLORIDE
     Dosage: TAKE 1 TO 2 TABLETS BY MOUTH AT BEDTIME AS NEEDED
     Route: 048
  11. HYDROXYZINE HYDROCHLORIDE [Concomitant]
     Active Substance: HYDROXYZINE HYDROCHLORIDE
     Dosage: TAKE 1 TO 2 TABLETS BY MOUTH AT BEDTIME AS NEEDED
     Route: 048
  12. VENLAFAXINE HYDROCHLORIDE [Concomitant]
     Active Substance: VENLAFAXINE HYDROCHLORIDE
     Dosage: 150 MG, DAILY
     Route: 048
  13. XANAX [Concomitant]
     Active Substance: ALPRAZOLAM
     Indication: Anxiety
     Dosage: 5-1 TABLETS BY MOUTH DAILY AS NEEDED (PRN) 0.5-1 TABLETS PRN SEVERE ANXIETY.
  14. XANAX [Concomitant]
     Active Substance: ALPRAZOLAM
     Dosage: 5-1 TABLETS BY MOUTH DAILY AS NEEDED (PRN) 0.5-1 TABLETS PRN SEVERE ANXIETY.
     Route: 048
  15. VENTOLIN HFA [Concomitant]
     Active Substance: ALBUTEROL SULFATE
     Dosage: 2 PUFF INHALE EVERY 4 HOURS AS NEEDED (PRN)
     Route: 055
  16. EPIPEN [Concomitant]
     Active Substance: EPINEPHRINE
     Dosage: 1 UNIT INTRAMUSCULAR AS DIRECTED AS NEEDED. (PRN)
     Route: 030
  17. SENNA PLUS [SENNA ALEXANDRINA] [Concomitant]
     Dosage: 1 TAB BY MOUTH TWICE DAILY
  18. SENNA PLUS [SENNA ALEXANDRINA] [Concomitant]
     Dosage: 50 MG, 2X/DAY
     Route: 048

REACTIONS (5)
  - Drug interaction [Recovering/Resolving]
  - Crying [Recovering/Resolving]
  - Mental disorder [Recovering/Resolving]
  - Tremor [Recovered/Resolved]
  - Restlessness [Recovering/Resolving]

NARRATIVE: CASE EVENT DATE: 20240802
